FAERS Safety Report 4706269-8 (Version None)
Quarter: 2005Q2

REPORT INFORMATION
  Report Type: 
  Country: None (occurrence: None)
  Receive Date: 20050629
  Receipt Date: 20050615
  Transmission Date: 20051028
  Serious: Yes (Other)
  Sender: FDA-Public Use
  Company Number: 8009391

PATIENT
  Age: 21 Year
  Sex: Female
  Weight: 70.45 kg

DRUGS (3)
  1. KEPPRA [Suspect]
     Indication: CONVULSION
     Dosage: 1500 MG /D PO
     Route: 048
     Dates: start: 20041201, end: 20050301
  2. KEPPRA [Suspect]
     Indication: CONVULSION
     Dosage: 1000 MG 2/D PO
     Route: 048
     Dates: start: 20050301
  3. AMOXICILLIN [Concomitant]

REACTIONS (4)
  - CONVERSION DISORDER [None]
  - EAR INFECTION [None]
  - FAMILY STRESS [None]
  - STRESS [None]
